FAERS Safety Report 7910263-3 (Version None)
Quarter: 2011Q4

REPORT INFORMATION
  Report Type: 
  Country: None (occurrence: None)
  Receive Date: 20111111
  Receipt Date: 20111103
  Transmission Date: 20120403
  Serious: Yes (Hospitalization)
  Sender: FDA-Public Use
  Company Number: US-ABBOTT-11P-163-0871085-00

PATIENT
  Age: 51 Year
  Sex: Male

DRUGS (4)
  1. ENFUVIRTIDE [Suspect]
     Indication: HIV INFECTION
     Dates: start: 20060101
  2. EMTRICITABINE [Suspect]
     Indication: HIV INFECTION
     Dates: start: 20060101
  3. LOPINAVIR/RITONAVIR [Suspect]
     Indication: HIV INFECTION
     Dates: start: 20060101
  4. TENOFOVIR DISOPROXIL FUMARATE [Suspect]
     Indication: HIV INFECTION
     Dates: start: 20060101

REACTIONS (1)
  - DEMENTIA [None]
